FAERS Safety Report 24791717 (Version 2)
Quarter: 2025Q2

REPORT INFORMATION
  Report Type: Spontaneous
  Country: CA (occurrence: CA)
  Receive Date: 20241231
  Receipt Date: 20250627
  Transmission Date: 20250716
  Serious: Yes (Death, Life-Threatening, Hospitalization, Disabling, Congenital Anomaly, Other)
  Sender: Haleon PLC
  Company Number: CA-HALEON-2219019

PATIENT
  Age: 40 Year
  Sex: Female

DRUGS (415)
  1. DICLOFENAC SODIUM [Suspect]
     Active Substance: DICLOFENAC SODIUM
     Indication: Product used for unknown indication
  2. DICLOFENAC SODIUM [Suspect]
     Active Substance: DICLOFENAC SODIUM
     Indication: Rheumatoid arthritis
     Route: 058
  3. DICLOFENAC SODIUM [Suspect]
     Active Substance: DICLOFENAC SODIUM
  4. DICLOFENAC SODIUM [Suspect]
     Active Substance: DICLOFENAC SODIUM
  5. CHLORHEXIDINE GLUCONATE [Suspect]
     Active Substance: CHLORHEXIDINE GLUCONATE
     Indication: Product used for unknown indication
     Route: 061
  6. CHLORHEXIDINE GLUCONATE [Suspect]
     Active Substance: CHLORHEXIDINE GLUCONATE
  7. CHLORHEXIDINE GLUCONATE [Suspect]
     Active Substance: CHLORHEXIDINE GLUCONATE
  8. ACETAMINOPHEN [Suspect]
     Active Substance: ACETAMINOPHEN
     Indication: Rheumatoid arthritis
  9. ACETAMINOPHEN [Suspect]
     Active Substance: ACETAMINOPHEN
  10. ACETAMINOPHEN [Suspect]
     Active Substance: ACETAMINOPHEN
  11. ACETAMINOPHEN [Suspect]
     Active Substance: ACETAMINOPHEN
  12. ACETAMINOPHEN [Suspect]
     Active Substance: ACETAMINOPHEN
  13. CHOLECALCIFEROL [Suspect]
     Active Substance: CHOLECALCIFEROL
     Indication: Product used for unknown indication
  14. DICLOFENAC DIETHYLAMINE [Suspect]
     Active Substance: DICLOFENAC DIETHYLAMINE
     Indication: Product used for unknown indication
  15. ADALIMUMAB [Suspect]
     Active Substance: ADALIMUMAB
     Indication: Rheumatoid arthritis
     Route: 058
  16. ADALIMUMAB [Suspect]
     Active Substance: ADALIMUMAB
     Route: 058
  17. ADALIMUMAB [Suspect]
     Active Substance: ADALIMUMAB
     Route: 058
  18. ALENDRONIC ACID [Suspect]
     Active Substance: ALENDRONIC ACID
     Indication: Rheumatoid arthritis
     Route: 016
  19. ALENDRONIC ACID [Suspect]
     Active Substance: ALENDRONIC ACID
     Route: 048
  20. ALENDRONIC ACID [Suspect]
     Active Substance: ALENDRONIC ACID
     Route: 048
  21. ALENDRONIC ACID [Suspect]
     Active Substance: ALENDRONIC ACID
  22. ALENDRONIC ACID [Suspect]
     Active Substance: ALENDRONIC ACID
  23. ALENDRONIC ACID [Suspect]
     Active Substance: ALENDRONIC ACID
     Route: 048
  24. ALENDRONIC ACID [Suspect]
     Active Substance: ALENDRONIC ACID
  25. LEFLUNOMIDE [Suspect]
     Active Substance: LEFLUNOMIDE
     Indication: Rheumatoid arthritis
     Route: 048
  26. LEFLUNOMIDE [Suspect]
     Active Substance: LEFLUNOMIDE
  27. LEFLUNOMIDE [Suspect]
     Active Substance: LEFLUNOMIDE
  28. LEFLUNOMIDE [Suspect]
     Active Substance: LEFLUNOMIDE
     Route: 048
  29. LEFLUNOMIDE [Suspect]
     Active Substance: LEFLUNOMIDE
     Route: 048
  30. LEFLUNOMIDE [Suspect]
     Active Substance: LEFLUNOMIDE
     Route: 048
  31. LEFLUNOMIDE [Suspect]
     Active Substance: LEFLUNOMIDE
     Route: 048
  32. PREDNISONE [Suspect]
     Active Substance: PREDNISONE
     Indication: Rheumatoid arthritis
  33. PREDNISONE [Suspect]
     Active Substance: PREDNISONE
     Route: 048
  34. PREDNISONE [Suspect]
     Active Substance: PREDNISONE
     Route: 048
  35. PREDNISONE [Suspect]
     Active Substance: PREDNISONE
  36. PREDNISONE [Suspect]
     Active Substance: PREDNISONE
  37. PREDNISONE [Suspect]
     Active Substance: PREDNISONE
     Route: 048
  38. PREDNISONE [Suspect]
     Active Substance: PREDNISONE
     Route: 048
  39. PREDNISONE [Suspect]
     Active Substance: PREDNISONE
     Route: 048
  40. PREDNISONE [Suspect]
     Active Substance: PREDNISONE
     Route: 048
  41. APREMILAST [Suspect]
     Active Substance: APREMILAST
     Indication: Rheumatoid arthritis
  42. GOLIMUMAB [Suspect]
     Active Substance: GOLIMUMAB
     Indication: Rheumatoid arthritis
  43. GOLIMUMAB [Suspect]
     Active Substance: GOLIMUMAB
     Indication: Prostatic specific antigen
  44. GOLIMUMAB [Suspect]
     Active Substance: GOLIMUMAB
     Route: 058
  45. GOLIMUMAB [Suspect]
     Active Substance: GOLIMUMAB
     Route: 058
  46. HUMIRA [Suspect]
     Active Substance: ADALIMUMAB
     Indication: Rheumatoid arthritis
  47. HUMIRA [Suspect]
     Active Substance: ADALIMUMAB
     Route: 058
  48. HUMIRA [Suspect]
     Active Substance: ADALIMUMAB
     Route: 058
  49. HUMIRA [Suspect]
     Active Substance: ADALIMUMAB
     Route: 058
  50. HUMIRA [Suspect]
     Active Substance: ADALIMUMAB
     Route: 058
  51. HYDROXYCHLOROQUINE [Suspect]
     Active Substance: HYDROXYCHLOROQUINE
     Indication: Rheumatoid arthritis
  52. HYDROXYCHLOROQUINE [Suspect]
     Active Substance: HYDROXYCHLOROQUINE
     Route: 048
  53. HYDROXYCHLOROQUINE [Suspect]
     Active Substance: HYDROXYCHLOROQUINE
  54. HYDROXYCHLOROQUINE [Suspect]
     Active Substance: HYDROXYCHLOROQUINE
     Route: 048
  55. HYDROXYCHLOROQUINE [Suspect]
     Active Substance: HYDROXYCHLOROQUINE
     Route: 058
  56. HYDROXYCHLOROQUINE [Suspect]
     Active Substance: HYDROXYCHLOROQUINE
  57. HYDROXYCHLOROQUINE [Suspect]
     Active Substance: HYDROXYCHLOROQUINE
     Route: 016
  58. HYDROXYCHLOROQUINE [Suspect]
     Active Substance: HYDROXYCHLOROQUINE
  59. HYDROXYCHLOROQUINE [Suspect]
     Active Substance: HYDROXYCHLOROQUINE
     Route: 048
  60. HYDROXYCHLOROQUINE [Suspect]
     Active Substance: HYDROXYCHLOROQUINE
     Route: 048
  61. HYDROXYCHLOROQUINE [Suspect]
     Active Substance: HYDROXYCHLOROQUINE
  62. HYDROXYCHLOROQUINE [Suspect]
     Active Substance: HYDROXYCHLOROQUINE
  63. HYDROXYCHLOROQUINE [Suspect]
     Active Substance: HYDROXYCHLOROQUINE
  64. HYDROXYCHLOROQUINE [Suspect]
     Active Substance: HYDROXYCHLOROQUINE
  65. HYDROXYCHLOROQUINE [Suspect]
     Active Substance: HYDROXYCHLOROQUINE
  66. HYDROXYCHLOROQUINE [Suspect]
     Active Substance: HYDROXYCHLOROQUINE
  67. HYDROXYCHLOROQUINE [Suspect]
     Active Substance: HYDROXYCHLOROQUINE
  68. HYDROXYCHLOROQUINE [Suspect]
     Active Substance: HYDROXYCHLOROQUINE
  69. HYDROXYCHLOROQUINE SULFATE [Suspect]
     Active Substance: HYDROXYCHLOROQUINE SULFATE
     Indication: Rheumatoid arthritis
  70. HYDROXYCHLOROQUINE SULFATE [Suspect]
     Active Substance: HYDROXYCHLOROQUINE SULFATE
     Route: 048
  71. HYDROXYCHLOROQUINE SULFATE [Suspect]
     Active Substance: HYDROXYCHLOROQUINE SULFATE
  72. HYDROXYCHLOROQUINE SULFATE [Suspect]
     Active Substance: HYDROXYCHLOROQUINE SULFATE
     Route: 048
  73. HYDROXYCHLOROQUINE SULFATE [Suspect]
     Active Substance: HYDROXYCHLOROQUINE SULFATE
  74. HYDROXYCHLOROQUINE SULFATE [Suspect]
     Active Substance: HYDROXYCHLOROQUINE SULFATE
     Route: 048
  75. HYDROXYCHLOROQUINE SULFATE [Suspect]
     Active Substance: HYDROXYCHLOROQUINE SULFATE
  76. HYDROXYCHLOROQUINE SULFATE [Suspect]
     Active Substance: HYDROXYCHLOROQUINE SULFATE
  77. HYDROXYCHLOROQUINE SULFATE [Suspect]
     Active Substance: HYDROXYCHLOROQUINE SULFATE
  78. INFLIXIMAB [Suspect]
     Active Substance: INFLIXIMAB
     Indication: Rheumatoid arthritis
  79. INFLIXIMAB [Suspect]
     Active Substance: INFLIXIMAB
  80. INFLIXIMAB [Suspect]
     Active Substance: INFLIXIMAB
  81. INFLIXIMAB [Suspect]
     Active Substance: INFLIXIMAB
  82. INFLIXIMAB [Suspect]
     Active Substance: INFLIXIMAB
  83. LAMICTAL [Suspect]
     Active Substance: LAMOTRIGINE
     Indication: Product used for unknown indication
     Route: 048
  84. LAMICTAL [Suspect]
     Active Substance: LAMOTRIGINE
     Route: 048
  85. LAMICTAL [Suspect]
     Active Substance: LAMOTRIGINE
     Route: 048
  86. LAMICTAL [Suspect]
     Active Substance: LAMOTRIGINE
     Route: 048
  87. LAMICTAL [Suspect]
     Active Substance: LAMOTRIGINE
     Route: 048
  88. LAMICTAL [Suspect]
     Active Substance: LAMOTRIGINE
     Route: 048
  89. LEFLUNOMIDE [Suspect]
     Active Substance: LEFLUNOMIDE
     Indication: Rheumatoid arthritis
  90. LEFLUNOMIDE [Suspect]
     Active Substance: LEFLUNOMIDE
     Route: 048
  91. LEFLUNOMIDE [Suspect]
     Active Substance: LEFLUNOMIDE
  92. LEFLUNOMIDE [Suspect]
     Active Substance: LEFLUNOMIDE
  93. LEFLUNOMIDE [Suspect]
     Active Substance: LEFLUNOMIDE
  94. LEFLUNOMIDE [Suspect]
     Active Substance: LEFLUNOMIDE
  95. METFORMIN HYDROCHLORIDE [Suspect]
     Active Substance: METFORMIN HYDROCHLORIDE
     Indication: Rheumatoid arthritis
  96. METFORMIN HYDROCHLORIDE [Suspect]
     Active Substance: METFORMIN HYDROCHLORIDE
     Route: 040
  97. METHOTREXATE [Suspect]
     Active Substance: METHOTREXATE
     Indication: Rheumatoid arthritis
     Route: 013
  98. METHOTREXATE [Suspect]
     Active Substance: METHOTREXATE
     Route: 048
  99. METHOTREXATE [Suspect]
     Active Substance: METHOTREXATE
  100. METHOTREXATE [Suspect]
     Active Substance: METHOTREXATE
  101. METHOTREXATE [Suspect]
     Active Substance: METHOTREXATE
     Dosage: 1 EVERY 1 WEEK
     Route: 058
  102. METHOTREXATE [Suspect]
     Active Substance: METHOTREXATE
     Dosage: 1 EVERY 1 WEEK
     Route: 048
  103. METHOTREXATE [Suspect]
     Active Substance: METHOTREXATE
     Dosage: 1 EVERY 1 WEEK
     Route: 013
  104. METHOTREXATE [Suspect]
     Active Substance: METHOTREXATE
     Route: 048
  105. METHOTREXATE [Suspect]
     Active Substance: METHOTREXATE
  106. METHOTREXATE [Suspect]
     Active Substance: METHOTREXATE
     Route: 048
  107. METHOTREXATE [Suspect]
     Active Substance: METHOTREXATE
     Route: 048
  108. METHOTREXATE [Suspect]
     Active Substance: METHOTREXATE
  109. METHOTREXATE [Suspect]
     Active Substance: METHOTREXATE
     Route: 048
  110. METHOTREXATE [Suspect]
     Active Substance: METHOTREXATE
  111. METHOTREXATE [Suspect]
     Active Substance: METHOTREXATE
     Dosage: 1 EVERY 1 WEEKS
     Route: 048
  112. METHOTREXATE [Suspect]
     Active Substance: METHOTREXATE
     Dosage: 1 EVERY 1 WEEKS
     Route: 058
  113. METHOTREXATE [Suspect]
     Active Substance: METHOTREXATE
     Dosage: 1 EVERY 1 WEEKS
  114. METHOTREXATE [Suspect]
     Active Substance: METHOTREXATE
     Dosage: 1 EVERY 1 WEEKS
     Route: 048
  115. METHOTREXATE [Suspect]
     Active Substance: METHOTREXATE
  116. METHOTREXATE [Suspect]
     Active Substance: METHOTREXATE
     Route: 016
  117. METHOTREXATE [Suspect]
     Active Substance: METHOTREXATE
  118. METHOTREXATE [Suspect]
     Active Substance: METHOTREXATE
     Route: 048
  119. METHOTREXATE [Suspect]
     Active Substance: METHOTREXATE
     Dosage: 1 EVERY 1 WEEKS
  120. METHYLPREDNISOLONE [Suspect]
     Active Substance: METHYLPREDNISOLONE
     Indication: Rheumatoid arthritis
  121. METHYLPREDNISOLONE SODIUM SUCCINATE [Suspect]
     Active Substance: METHYLPREDNISOLONE SODIUM SUCCINATE
     Indication: Rheumatoid arthritis
  122. MINOCYCLINE [Suspect]
     Active Substance: MINOCYCLINE HYDROCHLORIDE
     Indication: Product used for unknown indication
  123. MINOCYCLINE HYDROCHLORIDE [Suspect]
     Active Substance: MINOCYCLINE HYDROCHLORIDE
     Indication: Rheumatoid arthritis
  124. MYOCHRYSINE [Suspect]
     Active Substance: GOLD SODIUM THIOMALATE
     Indication: Rheumatoid arthritis
     Route: 030
  125. MYRBETRIQ [Suspect]
     Active Substance: MIRABEGRON
     Indication: Product used for unknown indication
  126. MYRBETRIQ [Suspect]
     Active Substance: MIRABEGRON
  127. NAPROXEN [Suspect]
     Active Substance: NAPROXEN
     Indication: Product used for unknown indication
  128. NAPROXEN SODIUM [Suspect]
     Active Substance: NAPROXEN SODIUM
     Indication: Rheumatoid arthritis
  129. ORENCIA [Suspect]
     Active Substance: ABATACEPT
     Indication: Rheumatoid arthritis
  130. ORENCIA [Suspect]
     Active Substance: ABATACEPT
  131. ORENCIA [Suspect]
     Active Substance: ABATACEPT
  132. ORENCIA [Suspect]
     Active Substance: ABATACEPT
  133. ORENCIA [Suspect]
     Active Substance: ABATACEPT
  134. ORENCIA [Suspect]
     Active Substance: ABATACEPT
  135. ORENCIA [Suspect]
     Active Substance: ABATACEPT
  136. ORENCIA [Suspect]
     Active Substance: ABATACEPT
     Dosage: 1 EVERY 1 WEEKS
     Route: 058
  137. ORENCIA [Suspect]
     Active Substance: ABATACEPT
     Route: 058
  138. ORENCIA [Suspect]
     Active Substance: ABATACEPT
  139. ORENCIA [Suspect]
     Active Substance: ABATACEPT
  140. ORENCIA [Suspect]
     Active Substance: ABATACEPT
  141. NUCALA [Suspect]
     Active Substance: MEPOLIZUMAB
     Indication: Product used for unknown indication
  142. OXYCODONE TEREPHTHALATE [Suspect]
     Active Substance: OXYCODONE TEREPHTHALATE
     Indication: Product used for unknown indication
  143. PHENYLEPHRINE HYDROCHLORIDE [Suspect]
     Active Substance: PHENYLEPHRINE HYDROCHLORIDE
     Indication: Rheumatoid arthritis
  144. PHTHALYLSULFATHIAZOLE [Suspect]
     Active Substance: PHTHALYLSULFATHIAZOLE
     Indication: Rheumatoid arthritis
     Route: 058
  145. PHTHALYLSULFATHIAZOLE [Suspect]
     Active Substance: PHTHALYLSULFATHIAZOLE
  146. PHTHALYLSULFATHIAZOLE [Suspect]
     Active Substance: PHTHALYLSULFATHIAZOLE
  147. PHTHALYLSULFATHIAZOLE [Suspect]
     Active Substance: PHTHALYLSULFATHIAZOLE
  148. PHTHALYLSULFATHIAZOLE [Suspect]
     Active Substance: PHTHALYLSULFATHIAZOLE
     Route: 048
  149. PHTHALYLSULFATHIAZOLE [Suspect]
     Active Substance: PHTHALYLSULFATHIAZOLE
  150. PHTHALYLSULFATHIAZOLE [Suspect]
     Active Substance: PHTHALYLSULFATHIAZOLE
     Route: 048
  151. PHTHALYLSULFATHIAZOLE [Suspect]
     Active Substance: PHTHALYLSULFATHIAZOLE
  152. PREDNISONE [Suspect]
     Active Substance: PREDNISONE
     Indication: Rheumatoid arthritis
  153. PREDNISONE [Suspect]
     Active Substance: PREDNISONE
  154. PREDNISONE [Suspect]
     Active Substance: PREDNISONE
  155. PREDNISONE [Suspect]
     Active Substance: PREDNISONE
  156. PREDNISONE [Suspect]
     Active Substance: PREDNISONE
     Route: 048
  157. PREDNISONE [Suspect]
     Active Substance: PREDNISONE
  158. PREDNISONE [Suspect]
     Active Substance: PREDNISONE
     Route: 048
  159. PREDNISONE [Suspect]
     Active Substance: PREDNISONE
     Route: 048
  160. PREDNISONE [Suspect]
     Active Substance: PREDNISONE
     Route: 048
  161. PREDNISONE [Suspect]
     Active Substance: PREDNISONE
     Route: 048
  162. PSEUDOEPHEDRINE HYDROCHLORIDE [Suspect]
     Active Substance: PSEUDOEPHEDRINE HYDROCHLORIDE
     Indication: Rheumatoid arthritis
  163. PSEUDOEPHEDRINE HYDROCHLORIDE [Suspect]
     Active Substance: PSEUDOEPHEDRINE HYDROCHLORIDE
  164. PSEUDOEPHEDRINE HYDROCHLORIDE [Suspect]
     Active Substance: PSEUDOEPHEDRINE HYDROCHLORIDE
  165. PSEUDOEPHEDRINE HYDROCHLORIDE [Suspect]
     Active Substance: PSEUDOEPHEDRINE HYDROCHLORIDE
  166. RAMIPRIL [Suspect]
     Active Substance: RAMIPRIL
     Indication: Rheumatoid arthritis
  167. RAMIPRIL [Suspect]
     Active Substance: RAMIPRIL
  168. RAMIPRIL [Suspect]
     Active Substance: RAMIPRIL
     Route: 016
  169. RANITIDINE [Suspect]
     Active Substance: RANITIDINE
     Indication: Product used for unknown indication
  170. CETIRIZINE HYDROCHLORIDE\PSEUDOEPHEDRINE HYDROCHLORIDE [Suspect]
     Active Substance: CETIRIZINE HYDROCHLORIDE\PSEUDOEPHEDRINE HYDROCHLORIDE
     Indication: Rheumatoid arthritis
  171. CETIRIZINE HYDROCHLORIDE\PSEUDOEPHEDRINE HYDROCHLORIDE [Suspect]
     Active Substance: CETIRIZINE HYDROCHLORIDE\PSEUDOEPHEDRINE HYDROCHLORIDE
  172. CETIRIZINE HYDROCHLORIDE\PSEUDOEPHEDRINE HYDROCHLORIDE [Suspect]
     Active Substance: CETIRIZINE HYDROCHLORIDE\PSEUDOEPHEDRINE HYDROCHLORIDE
  173. CETIRIZINE HYDROCHLORIDE\PSEUDOEPHEDRINE HYDROCHLORIDE [Suspect]
     Active Substance: CETIRIZINE HYDROCHLORIDE\PSEUDOEPHEDRINE HYDROCHLORIDE
  174. CETIRIZINE HYDROCHLORIDE\PSEUDOEPHEDRINE HYDROCHLORIDE [Suspect]
     Active Substance: CETIRIZINE HYDROCHLORIDE\PSEUDOEPHEDRINE HYDROCHLORIDE
  175. CETIRIZINE HYDROCHLORIDE\PSEUDOEPHEDRINE HYDROCHLORIDE [Suspect]
     Active Substance: CETIRIZINE HYDROCHLORIDE\PSEUDOEPHEDRINE HYDROCHLORIDE
  176. CETIRIZINE HYDROCHLORIDE\PSEUDOEPHEDRINE HYDROCHLORIDE [Suspect]
     Active Substance: CETIRIZINE HYDROCHLORIDE\PSEUDOEPHEDRINE HYDROCHLORIDE
  177. REMICADE [Suspect]
     Active Substance: INFLIXIMAB
     Indication: Rheumatoid arthritis
     Route: 058
  178. REMICADE [Suspect]
     Active Substance: INFLIXIMAB
     Route: 058
  179. REMICADE [Suspect]
     Active Substance: INFLIXIMAB
  180. REMICADE [Suspect]
     Active Substance: INFLIXIMAB
  181. REMICADE [Suspect]
     Active Substance: INFLIXIMAB
  182. REMICADE [Suspect]
     Active Substance: INFLIXIMAB
  183. REMICADE [Suspect]
     Active Substance: INFLIXIMAB
  184. RITUXIMAB [Suspect]
     Active Substance: RITUXIMAB
     Indication: Rheumatoid arthritis
  185. RITUXIMAB [Suspect]
     Active Substance: RITUXIMAB
  186. RITUXIMAB [Suspect]
     Active Substance: RITUXIMAB
     Route: 043
  187. RITUXIMAB [Suspect]
     Active Substance: RITUXIMAB
  188. RITUXIMAB [Suspect]
     Active Substance: RITUXIMAB
  189. RITUXIMAB [Suspect]
     Active Substance: RITUXIMAB
  190. RITUXIMAB [Suspect]
     Active Substance: RITUXIMAB
  191. RITUXIMAB [Suspect]
     Active Substance: RITUXIMAB
     Route: 016
  192. RITUXIMAB [Suspect]
     Active Substance: RITUXIMAB
     Route: 016
  193. RITUXIMAB [Suspect]
     Active Substance: RITUXIMAB
     Route: 016
  194. RITUXIMAB [Suspect]
     Active Substance: RITUXIMAB
  195. RITUXIMAB [Suspect]
     Active Substance: RITUXIMAB
     Route: 058
  196. RITUXIMAB [Suspect]
     Active Substance: RITUXIMAB
  197. RITUXIMAB [Suspect]
     Active Substance: RITUXIMAB
  198. RITUXIMAB [Suspect]
     Active Substance: RITUXIMAB
  199. RITUXIMAB [Suspect]
     Active Substance: RITUXIMAB
     Route: 040
  200. RITUXIMAB [Suspect]
     Active Substance: RITUXIMAB
     Route: 043
  201. SIMPONI [Suspect]
     Active Substance: GOLIMUMAB
     Indication: Rheumatoid arthritis
     Route: 058
  202. SIMPONI [Suspect]
     Active Substance: GOLIMUMAB
     Route: 058
  203. SIMPONI [Suspect]
     Active Substance: GOLIMUMAB
     Route: 058
  204. SIMPONI [Suspect]
     Active Substance: GOLIMUMAB
  205. SIMPONI [Suspect]
     Active Substance: GOLIMUMAB
  206. SIRUKUMAB [Suspect]
     Active Substance: SIRUKUMAB
     Indication: Product used for unknown indication
  207. GOLD SODIUM THIOMALATE [Suspect]
     Active Substance: GOLD SODIUM THIOMALATE
     Indication: Product used for unknown indication
  208. GOLD SODIUM THIOMALATE [Suspect]
     Active Substance: GOLD SODIUM THIOMALATE
  209. GOLD SODIUM THIOMALATE [Suspect]
     Active Substance: GOLD SODIUM THIOMALATE
     Route: 048
  210. SULFASALAZINE [Suspect]
     Active Substance: SULFASALAZINE
     Indication: Rheumatoid arthritis
     Route: 048
  211. SULFASALAZINE [Suspect]
     Active Substance: SULFASALAZINE
     Route: 058
  212. SULFASALAZINE [Suspect]
     Active Substance: SULFASALAZINE
  213. SULFASALAZINE [Suspect]
     Active Substance: SULFASALAZINE
  214. SULFASALAZINE [Suspect]
     Active Substance: SULFASALAZINE
     Route: 048
  215. SULFASALAZINE [Suspect]
     Active Substance: SULFASALAZINE
     Route: 048
  216. SULFASALAZINE [Suspect]
     Active Substance: SULFASALAZINE
     Route: 048
  217. SULFASALAZINE [Suspect]
     Active Substance: SULFASALAZINE
     Route: 058
  218. SULFASALAZINE [Suspect]
     Active Substance: SULFASALAZINE
  219. SULFASALAZINE [Suspect]
     Active Substance: SULFASALAZINE
  220. SULFASALAZINE [Suspect]
     Active Substance: SULFASALAZINE
  221. SULFASALAZINE [Suspect]
     Active Substance: SULFASALAZINE
  222. SULFASALAZINE [Suspect]
     Active Substance: SULFASALAZINE
  223. SULFASALAZINE [Suspect]
     Active Substance: SULFASALAZINE
     Route: 058
  224. SULFASALAZINE [Suspect]
     Active Substance: SULFASALAZINE
     Route: 058
  225. SULFASALAZINE [Suspect]
     Active Substance: SULFASALAZINE
  226. SULFASALAZINE [Suspect]
     Active Substance: SULFASALAZINE
     Route: 058
  227. SULFASALAZINE [Suspect]
     Active Substance: SULFASALAZINE
  228. SULFASALAZINE [Suspect]
     Active Substance: SULFASALAZINE
  229. SULFASALAZINE [Suspect]
     Active Substance: SULFASALAZINE
     Route: 048
  230. SULFASALAZINE [Suspect]
     Active Substance: SULFASALAZINE
     Route: 048
  231. SULFASALAZINE [Suspect]
     Active Substance: SULFASALAZINE
     Route: 016
  232. SULFASALAZINE [Suspect]
     Active Substance: SULFASALAZINE
     Route: 048
  233. SULFASALAZINE [Suspect]
     Active Substance: SULFASALAZINE
  234. SULFASALAZINE [Suspect]
     Active Substance: SULFASALAZINE
     Route: 058
  235. TETRACYCLINE HYDROCHLORIDE [Suspect]
     Active Substance: TETRACYCLINE HYDROCHLORIDE
     Indication: Rheumatoid arthritis
  236. TOCILIZUMAB [Suspect]
     Active Substance: TOCILIZUMAB
     Indication: Rheumatoid arthritis
  237. TOCILIZUMAB [Suspect]
     Active Substance: TOCILIZUMAB
     Route: 058
  238. TOCILIZUMAB [Suspect]
     Active Substance: TOCILIZUMAB
  239. TOCILIZUMAB [Suspect]
     Active Substance: TOCILIZUMAB
  240. TOCILIZUMAB [Suspect]
     Active Substance: TOCILIZUMAB
  241. TOCILIZUMAB [Suspect]
     Active Substance: TOCILIZUMAB
     Route: 058
  242. TOCILIZUMAB [Suspect]
     Active Substance: TOCILIZUMAB
     Route: 016
  243. TOFACITINIB CITRATE [Suspect]
     Active Substance: TOFACITINIB CITRATE
     Indication: Rheumatoid arthritis
  244. TOFACITINIB CITRATE [Suspect]
     Active Substance: TOFACITINIB CITRATE
  245. TOFACITINIB CITRATE [Suspect]
     Active Substance: TOFACITINIB CITRATE
  246. TOPIRAMATE [Suspect]
     Active Substance: TOPIRAMATE
     Indication: Rheumatoid arthritis
  247. TOPIRAMATE [Suspect]
     Active Substance: TOPIRAMATE
  248. TOPIRAMATE [Suspect]
     Active Substance: TOPIRAMATE
  249. TOPIRAMATE [Suspect]
     Active Substance: TOPIRAMATE
  250. TRAMADOL HYDROCHLORIDE [Suspect]
     Active Substance: TRAMADOL HYDROCHLORIDE
     Indication: Product used for unknown indication
  251. TRIAMCINOLONE ACETONIDE [Suspect]
     Active Substance: TRIAMCINOLONE ACETONIDE
     Indication: Rheumatoid arthritis
  252. TRIAMCINOLONE ACETONIDE [Suspect]
     Active Substance: TRIAMCINOLONE ACETONIDE
  253. TRIAMCINOLONE ACETONIDE [Suspect]
     Active Substance: TRIAMCINOLONE ACETONIDE
  254. TRIAMCINOLONE ACETONIDE [Suspect]
     Active Substance: TRIAMCINOLONE ACETONIDE
  255. TRIAMCINOLONE ACETONIDE [Suspect]
     Active Substance: TRIAMCINOLONE ACETONIDE
  256. XELJANZ [Suspect]
     Active Substance: TOFACITINIB CITRATE
     Indication: Rheumatoid arthritis
  257. XELJANZ [Suspect]
     Active Substance: TOFACITINIB CITRATE
     Route: 048
  258. XELJANZ [Suspect]
     Active Substance: TOFACITINIB CITRATE
     Route: 048
  259. XELJANZ [Suspect]
     Active Substance: TOFACITINIB CITRATE
     Route: 048
  260. XELJANZ [Suspect]
     Active Substance: TOFACITINIB CITRATE
     Route: 048
  261. XELJANZ [Suspect]
     Active Substance: TOFACITINIB CITRATE
  262. XELJANZ [Suspect]
     Active Substance: TOFACITINIB CITRATE
  263. XELJANZ [Suspect]
     Active Substance: TOFACITINIB CITRATE
  264. ACTEMRA [Suspect]
     Active Substance: TOCILIZUMAB
     Indication: Rheumatoid arthritis
     Route: 058
  265. ACTEMRA [Suspect]
     Active Substance: TOCILIZUMAB
     Route: 040
  266. ACTEMRA [Suspect]
     Active Substance: TOCILIZUMAB
     Route: 016
  267. ACTEMRA [Suspect]
     Active Substance: TOCILIZUMAB
     Route: 040
  268. ACTEMRA [Suspect]
     Active Substance: TOCILIZUMAB
  269. ACTEMRA [Suspect]
     Active Substance: TOCILIZUMAB
  270. ACTEMRA [Suspect]
     Active Substance: TOCILIZUMAB
     Route: 040
  271. ACTEMRA [Suspect]
     Active Substance: TOCILIZUMAB
     Route: 040
  272. ACTEMRA [Suspect]
     Active Substance: TOCILIZUMAB
     Route: 040
  273. ACTEMRA [Suspect]
     Active Substance: TOCILIZUMAB
  274. ACTEMRA [Suspect]
     Active Substance: TOCILIZUMAB
     Route: 058
  275. ACTEMRA [Suspect]
     Active Substance: TOCILIZUMAB
     Route: 058
  276. ACTEMRA [Suspect]
     Active Substance: TOCILIZUMAB
     Route: 058
  277. ACTEMRA [Suspect]
     Active Substance: TOCILIZUMAB
     Route: 058
  278. ACTEMRA [Suspect]
     Active Substance: TOCILIZUMAB
     Route: 061
  279. ACTEMRA [Suspect]
     Active Substance: TOCILIZUMAB
     Route: 058
  280. ACTEMRA [Suspect]
     Active Substance: TOCILIZUMAB
     Route: 040
  281. ACTEMRA [Suspect]
     Active Substance: TOCILIZUMAB
     Route: 058
  282. AIMOVIG [Suspect]
     Active Substance: ERENUMAB-AOOE
     Indication: Migraine
  283. AIMOVIG [Suspect]
     Active Substance: ERENUMAB-AOOE
  284. ARAVA [Suspect]
     Active Substance: LEFLUNOMIDE
     Indication: Rheumatoid arthritis
  285. ARAVA [Suspect]
     Active Substance: LEFLUNOMIDE
  286. ARAVA [Suspect]
     Active Substance: LEFLUNOMIDE
     Route: 048
  287. ARAVA [Suspect]
     Active Substance: LEFLUNOMIDE
     Route: 048
  288. ARAVA [Suspect]
     Active Substance: LEFLUNOMIDE
  289. ARAVA [Suspect]
     Active Substance: LEFLUNOMIDE
     Route: 048
  290. ARAVA [Suspect]
     Active Substance: LEFLUNOMIDE
     Route: 048
  291. AZATHIOPRINE SODIUM [Suspect]
     Active Substance: AZATHIOPRINE SODIUM
     Indication: Rheumatoid arthritis
  292. AZATHIOPRINE SODIUM [Suspect]
     Active Substance: AZATHIOPRINE SODIUM
  293. BERINERT [Suspect]
     Active Substance: HUMAN C1-ESTERASE INHIBITOR
     Indication: Product used for unknown indication
  294. BOTULINUM TOXIN TYPE A [Suspect]
     Active Substance: BOTULINUM TOXIN TYPE A
     Indication: Product used for unknown indication
  295. BUTRANS [Suspect]
     Active Substance: BUPRENORPHINE
     Indication: Migraine
  296. CANDESARTAN [Suspect]
     Active Substance: CANDESARTAN
     Indication: Migraine
  297. CELEBREX [Suspect]
     Active Substance: CELECOXIB
     Indication: Migraine
     Route: 048
  298. CELEBREX [Suspect]
     Active Substance: CELECOXIB
  299. CERTOLIZUMAB PEGOL [Suspect]
     Active Substance: CERTOLIZUMAB PEGOL
     Indication: Product used for unknown indication
  300. CERTOLIZUMAB PEGOL [Suspect]
     Active Substance: CERTOLIZUMAB PEGOL
     Route: 058
  301. CERTOLIZUMAB PEGOL [Suspect]
     Active Substance: CERTOLIZUMAB PEGOL
     Route: 058
  302. CERTOLIZUMAB PEGOL [Suspect]
     Active Substance: CERTOLIZUMAB PEGOL
     Route: 058
  303. CERTOLIZUMAB PEGOL [Suspect]
     Active Substance: CERTOLIZUMAB PEGOL
  304. CERTOLIZUMAB PEGOL [Suspect]
     Active Substance: CERTOLIZUMAB PEGOL
  305. CETIRIZINE HYDROCHLORIDE [Suspect]
     Active Substance: CETIRIZINE HYDROCHLORIDE
     Indication: Rheumatoid arthritis
     Route: 016
  306. CETIRIZINE HYDROCHLORIDE [Suspect]
     Active Substance: CETIRIZINE HYDROCHLORIDE
  307. CETIRIZINE HYDROCHLORIDE [Suspect]
     Active Substance: CETIRIZINE HYDROCHLORIDE
  308. CETIRIZINE HYDROCHLORIDE [Suspect]
     Active Substance: CETIRIZINE HYDROCHLORIDE
  309. CETIRIZINE HYDROCHLORIDE [Suspect]
     Active Substance: CETIRIZINE HYDROCHLORIDE
  310. CETIRIZINE HYDROCHLORIDE [Suspect]
     Active Substance: CETIRIZINE HYDROCHLORIDE
  311. CETIRIZINE HYDROCHLORIDE [Suspect]
     Active Substance: CETIRIZINE HYDROCHLORIDE
  312. CETIRIZINE HYDROCHLORIDE [Suspect]
     Active Substance: CETIRIZINE HYDROCHLORIDE
     Route: 048
  313. CETIRIZINE HYDROCHLORIDE [Suspect]
     Active Substance: CETIRIZINE HYDROCHLORIDE
  314. CETIRIZINE HYDROCHLORIDE [Suspect]
     Active Substance: CETIRIZINE HYDROCHLORIDE
  315. CETIRIZINE HYDROCHLORIDE [Suspect]
     Active Substance: CETIRIZINE HYDROCHLORIDE
  316. CETIRIZINE HYDROCHLORIDE [Suspect]
     Active Substance: CETIRIZINE HYDROCHLORIDE
  317. CETIRIZINE HYDROCHLORIDE [Suspect]
     Active Substance: CETIRIZINE HYDROCHLORIDE
  318. CETIRIZINE HYDROCHLORIDE [Suspect]
     Active Substance: CETIRIZINE HYDROCHLORIDE
  319. CETIRIZINE HYDROCHLORIDE [Suspect]
     Active Substance: CETIRIZINE HYDROCHLORIDE
  320. CETIRIZINE HYDROCHLORIDE [Suspect]
     Active Substance: CETIRIZINE HYDROCHLORIDE
  321. CETIRIZINE HYDROCHLORIDE [Suspect]
     Active Substance: CETIRIZINE HYDROCHLORIDE
     Route: 048
  322. CETIRIZINE HYDROCHLORIDE [Suspect]
     Active Substance: CETIRIZINE HYDROCHLORIDE
  323. CETIRIZINE HYDROCHLORIDE [Suspect]
     Active Substance: CETIRIZINE HYDROCHLORIDE
  324. CETIRIZINE HYDROCHLORIDE [Suspect]
     Active Substance: CETIRIZINE HYDROCHLORIDE
  325. CETIRIZINE HYDROCHLORIDE [Suspect]
     Active Substance: CETIRIZINE HYDROCHLORIDE
  326. CETIRIZINE HYDROCHLORIDE [Suspect]
     Active Substance: CETIRIZINE HYDROCHLORIDE
     Route: 048
  327. CETIRIZINE HYDROCHLORIDE [Suspect]
     Active Substance: CETIRIZINE HYDROCHLORIDE
  328. CIMZIA [Suspect]
     Active Substance: CERTOLIZUMAB PEGOL
     Indication: Rheumatoid arthritis
     Route: 058
  329. CIMZIA [Suspect]
     Active Substance: CERTOLIZUMAB PEGOL
     Route: 058
  330. CIMZIA [Suspect]
     Active Substance: CERTOLIZUMAB PEGOL
  331. CIMZIA [Suspect]
     Active Substance: CERTOLIZUMAB PEGOL
     Route: 058
  332. CIMZIA [Suspect]
     Active Substance: CERTOLIZUMAB PEGOL
     Route: 058
  333. CIMZIA [Suspect]
     Active Substance: CERTOLIZUMAB PEGOL
  334. CIMZIA [Suspect]
     Active Substance: CERTOLIZUMAB PEGOL
     Route: 058
  335. COSENTYX [Suspect]
     Active Substance: SECUKINUMAB
     Indication: Rheumatoid arthritis
  336. COSENTYX [Suspect]
     Active Substance: SECUKINUMAB
  337. COSENTYX [Suspect]
     Active Substance: SECUKINUMAB
  338. DESOXIMETASONE [Suspect]
     Active Substance: DESOXIMETASONE
     Indication: Rheumatoid arthritis
  339. DESOXIMETASONE [Suspect]
     Active Substance: DESOXIMETASONE
  340. DESOXIMETASONE [Suspect]
     Active Substance: DESOXIMETASONE
  341. DESOXIMETASONE [Suspect]
     Active Substance: DESOXIMETASONE
  342. DESOXIMETASONE [Suspect]
     Active Substance: DESOXIMETASONE
  343. DESOXIMETASONE [Suspect]
     Active Substance: DESOXIMETASONE
  344. DESOXIMETASONE [Suspect]
     Active Substance: DESOXIMETASONE
     Route: 048
  345. DESOXIMETASONE [Suspect]
     Active Substance: DESOXIMETASONE
     Route: 048
  346. DESOXIMETASONE [Suspect]
     Active Substance: DESOXIMETASONE
     Route: 048
  347. DESOXIMETASONE [Suspect]
     Active Substance: DESOXIMETASONE
     Route: 048
  348. DESOXIMETASONE [Suspect]
     Active Substance: DESOXIMETASONE
     Route: 048
  349. DESOXIMETASONE [Suspect]
     Active Substance: DESOXIMETASONE
  350. DESOXIMETASONE [Suspect]
     Active Substance: DESOXIMETASONE
  351. DESOXIMETASONE [Suspect]
     Active Substance: DESOXIMETASONE
  352. DESOXIMETASONE [Suspect]
     Active Substance: DESOXIMETASONE
     Route: 048
  353. DESOXIMETASONE [Suspect]
     Active Substance: DESOXIMETASONE
  354. DOMPERIDONE MALEATE [Suspect]
     Active Substance: DOMPERIDONE MALEATE
     Indication: Product used for unknown indication
  355. ENBREL [Suspect]
     Active Substance: ETANERCEPT
     Indication: Rheumatoid arthritis
     Route: 058
  356. ENBREL [Suspect]
     Active Substance: ETANERCEPT
     Dosage: 1 EVERY 1 WEEKS
  357. ENBREL [Suspect]
     Active Substance: ETANERCEPT
     Route: 058
  358. ENBREL [Suspect]
     Active Substance: ETANERCEPT
     Route: 058
  359. ENBREL [Suspect]
     Active Substance: ETANERCEPT
     Route: 058
  360. ENBREL [Suspect]
     Active Substance: ETANERCEPT
     Route: 058
  361. ENBREL [Suspect]
     Active Substance: ETANERCEPT
     Route: 058
  362. ENBREL [Suspect]
     Active Substance: ETANERCEPT
  363. ENBREL [Suspect]
     Active Substance: ETANERCEPT
     Route: 058
  364. ENBREL [Suspect]
     Active Substance: ETANERCEPT
     Route: 058
  365. ENBREL [Suspect]
     Active Substance: ETANERCEPT
     Dosage: 1 EVERY 1 WEEKS
  366. ERELZI [Suspect]
     Active Substance: ETANERCEPT-SZZS
     Indication: Rheumatoid arthritis
  367. ERELZI [Suspect]
     Active Substance: ETANERCEPT-SZZS
     Route: 058
  368. ERELZI [Suspect]
     Active Substance: ETANERCEPT-SZZS
     Route: 058
  369. FLUMETHASONE [Suspect]
     Active Substance: FLUMETHASONE
     Indication: Product used for unknown indication
  370. FLUMETHASONE PIVALATE [Suspect]
     Active Substance: FLUMETHASONE PIVALATE
     Indication: Product used for unknown indication
  371. FLUMETHASONE PIVALATE [Suspect]
     Active Substance: FLUMETHASONE PIVALATE
  372. FOLIC ACID [Suspect]
     Active Substance: FOLIC ACID
     Indication: Rheumatoid arthritis
  373. FOLIC ACID [Suspect]
     Active Substance: FOLIC ACID
     Route: 048
  374. FOLIC ACID [Suspect]
     Active Substance: FOLIC ACID
  375. FOLIC ACID [Suspect]
     Active Substance: FOLIC ACID
  376. FOLIC ACID [Suspect]
     Active Substance: FOLIC ACID
     Route: 048
  377. FOLIC ACID [Suspect]
     Active Substance: FOLIC ACID
  378. FOLIC ACID [Suspect]
     Active Substance: FOLIC ACID
  379. FOLIC ACID [Suspect]
     Active Substance: FOLIC ACID
     Route: 048
  380. FOLIC ACID [Suspect]
     Active Substance: FOLIC ACID
  381. FOLIC ACID [Suspect]
     Active Substance: FOLIC ACID
  382. FOLIC ACID [Suspect]
     Active Substance: FOLIC ACID
  383. FOLIC ACID [Suspect]
     Active Substance: FOLIC ACID
  384. FOLIC ACID [Suspect]
     Active Substance: FOLIC ACID
  385. FOLIC ACID [Suspect]
     Active Substance: FOLIC ACID
     Route: 048
  386. FOSAMAX [Suspect]
     Active Substance: ALENDRONATE SODIUM
     Indication: Rheumatoid arthritis
  387. FOSAMAX [Suspect]
     Active Substance: ALENDRONATE SODIUM
     Route: 048
  388. FOSAMAX [Suspect]
     Active Substance: ALENDRONATE SODIUM
     Route: 016
  389. FOSAMAX [Suspect]
     Active Substance: ALENDRONATE SODIUM
  390. FOSAMAX [Suspect]
     Active Substance: ALENDRONATE SODIUM
  391. GOLD [Suspect]
     Active Substance: GOLD
     Indication: Product used for unknown indication
  392. GOLD SODIUM THIOMALATE [Suspect]
     Active Substance: GOLD SODIUM THIOMALATE
     Indication: Product used for unknown indication
  393. OXYCODONE [Suspect]
     Active Substance: OXYCODONE
     Indication: Product used for unknown indication
  394. DICLOFENAC DIETHYLAMINE [Suspect]
     Active Substance: DICLOFENAC DIETHYLAMINE
     Indication: Rheumatoid arthritis
  395. DICLOFENAC DIETHYLAMINE [Suspect]
     Active Substance: DICLOFENAC DIETHYLAMINE
     Route: 058
  396. DICLOFENAC DIETHYLAMINE [Suspect]
     Active Substance: DICLOFENAC DIETHYLAMINE
  397. SULFASALAZINE [Suspect]
     Active Substance: SULFASALAZINE
     Indication: Rheumatoid arthritis
  398. DICLOFENAC POTASSIUM [Suspect]
     Active Substance: DICLOFENAC POTASSIUM
     Indication: Product used for unknown indication
  399. DICLOFENAC POTASSIUM [Suspect]
     Active Substance: DICLOFENAC POTASSIUM
  400. DICLOFENAC POTASSIUM [Suspect]
     Active Substance: DICLOFENAC POTASSIUM
  401. APREMILAST [Suspect]
     Active Substance: APREMILAST
     Indication: Rheumatoid arthritis
  402. APREMILAST [Suspect]
     Active Substance: APREMILAST
  403. LEFLUNOMIDE [Suspect]
     Active Substance: LEFLUNOMIDE
     Indication: Rheumatoid arthritis
  404. LEFLUNOMIDE [Suspect]
     Active Substance: LEFLUNOMIDE
  405. LEFLUNOMIDE [Suspect]
     Active Substance: LEFLUNOMIDE
  406. LEFLUNOMIDE [Suspect]
     Active Substance: LEFLUNOMIDE
  407. LEFLUNOMIDE [Suspect]
     Active Substance: LEFLUNOMIDE
  408. LEFLUNOMIDE [Suspect]
     Active Substance: LEFLUNOMIDE
     Route: 048
  409. TOPIRAMATE [Suspect]
     Active Substance: TOPIRAMATE
     Indication: Rheumatoid arthritis
  410. TOPIRAMATE [Suspect]
     Active Substance: TOPIRAMATE
  411. TOPIRAMATE [Suspect]
     Active Substance: TOPIRAMATE
  412. TOPIRAMATE [Suspect]
     Active Substance: TOPIRAMATE
  413. STELARA [Suspect]
     Active Substance: USTEKINUMAB
     Indication: Rheumatoid arthritis
     Route: 058
  414. STELARA [Suspect]
     Active Substance: USTEKINUMAB
     Route: 058
  415. USTEKINUMAB [Suspect]
     Active Substance: USTEKINUMAB
     Indication: Product used for unknown indication
     Route: 058

REACTIONS (20)
  - Pneumonia [Fatal]
  - Bursitis [Fatal]
  - Fall [Fatal]
  - Finger deformity [Fatal]
  - Folliculitis [Fatal]
  - Gastrooesophageal reflux disease [Fatal]
  - Hepatitis [Fatal]
  - Hypoaesthesia [Fatal]
  - Incorrect product administration duration [Fatal]
  - Inflammation [Fatal]
  - Intentional product use issue [Fatal]
  - Injury [Fatal]
  - Liver function test increased [Fatal]
  - Mobility decreased [Fatal]
  - Muscular weakness [Fatal]
  - Off label use [Fatal]
  - Neck pain [Fatal]
  - Overdose [Fatal]
  - Underdose [Fatal]
  - Pain in extremity [Fatal]
